FAERS Safety Report 8175998-9 (Version None)
Quarter: 2012Q1

REPORT INFORMATION
  Report Type: 
  Country: None (occurrence: None)
  Receive Date: 20120301
  Receipt Date: 20120227
  Transmission Date: 20120608
  Serious: No
  Sender: FDA-Public Use
  Company Number: US-PFIZER INC-2012026803

PATIENT
  Sex: Female
  Weight: 61.224 kg

DRUGS (3)
  1. PRISTIQ [Suspect]
     Indication: ANXIETY
     Dosage: 50MG, DAILY
     Dates: start: 20110801
  2. PRISTIQ [Suspect]
     Dosage: EVERY THIRD DAY
  3. PRISTIQ [Suspect]
     Indication: DEPRESSION
     Dosage: EVERY OTHER DAY

REACTIONS (6)
  - STRESS [None]
  - PAIN [None]
  - HEAD DISCOMFORT [None]
  - FEELING ABNORMAL [None]
  - DIZZINESS [None]
  - DYSPNOEA [None]
